FAERS Safety Report 15753882 (Version 2)
Quarter: 2019Q1

REPORT INFORMATION
  Report Type: Spontaneous
  Country: HU (occurrence: HU)
  Receive Date: 20181222
  Receipt Date: 20190117
  Transmission Date: 20190417
  Serious: Yes (Hospitalization, Disabling, Other)
  Sender: FDA-Public Use
  Company Number: HU-TEVA-2018-HU-988983

PATIENT
  Age: 31 Year
  Sex: Female

DRUGS (8)
  1. LEVETIRACETAM TEVA [Suspect]
     Active Substance: LEVETIRACETAM
     Indication: EPILEPSY
     Dosage: 400MG DAILY INCREASED TO 2000MG DAILY
     Route: 048
     Dates: start: 2012, end: 2013
  2. RIVOTRIL [Concomitant]
     Active Substance: CLONAZEPAM
     Indication: EPILEPSY
     Dates: start: 201408
  3. LAMOTRIGIN ORION [Concomitant]
     Active Substance: LAMOTRIGINE
     Indication: EPILEPSY
     Dates: start: 201408
  4. KVENTIAX [Suspect]
     Active Substance: QUETIAPINE FUMARATE
     Indication: PSYCHOTIC DISORDER
     Dosage: 25-150MG
     Route: 048
     Dates: start: 2015, end: 2016
  5. KVENTIAX [Suspect]
     Active Substance: QUETIAPINE FUMARATE
     Dosage: 25-75MG
     Route: 048
     Dates: start: 2016, end: 201703
  6. RESTIGULIN [Suspect]
     Active Substance: ARIPIPRAZOLE
     Indication: PSYCHOTIC DISORDER
     Dosage: 10-20MG DAILY
     Route: 048
     Dates: start: 20170327, end: 201709
  7. VIMPAT [Suspect]
     Active Substance: LACOSAMIDE
     Indication: EPILEPSY
     Route: 048
     Dates: start: 2013, end: 2014
  8. DEPAKINE CHRONO [Concomitant]
     Active Substance: VALPROATE SODIUM
     Indication: EPILEPSY
     Dates: start: 201408

REACTIONS (17)
  - Fear [Not Recovered/Not Resolved]
  - Fatigue [Recovering/Resolving]
  - Paranoia [Not Recovered/Not Resolved]
  - Depressed mood [Recovering/Resolving]
  - Anxiety [Recovered/Resolved with Sequelae]
  - Headache [Not Recovered/Not Resolved]
  - Seizure [Not Recovered/Not Resolved]
  - Aggression [Not Recovered/Not Resolved]
  - Suicidal ideation [Recovering/Resolving]
  - Hypersomnia [Recovering/Resolving]
  - Tension [Not Recovered/Not Resolved]
  - Feeling of despair [Recovering/Resolving]
  - Suicide attempt [Recovering/Resolving]
  - Irritability [Not Recovered/Not Resolved]
  - Agitation [Not Recovered/Not Resolved]
  - Intentional self-injury [Recovering/Resolving]
  - Thinking abnormal [Recovering/Resolving]

NARRATIVE: CASE EVENT DATE: 2014
